FAERS Safety Report 22524960 (Version 2)
Quarter: 2023Q4

REPORT INFORMATION
  Report Type: Other
  Country: GB (occurrence: GB)
  Receive Date: 20230606
  Receipt Date: 20231202
  Transmission Date: 20240109
  Serious: No
  Sender: FDA-Public Use
  Company Number: GB-MACLEODS PHARMA EU LTD-MAC2023041646

PATIENT

DRUGS (3)
  1. EMTRICITABINE\TENOFOVIR [Suspect]
     Active Substance: EMTRICITABINE\TENOFOVIR
     Indication: Product used for unknown indication
     Dosage: 1 DOSAGE FORM, QD ( (TAB/CAPS, 1 COURSE, NOT PRIOR TO CONCEPTION, EXPOSURE TO SECOND TRIMESTER)
     Route: 064
     Dates: start: 20230116
  2. DOLUTEGRAVIR [Suspect]
     Active Substance: DOLUTEGRAVIR
     Indication: Product used for unknown indication
     Dosage: 50 MILLIGRAM, QD (2 COURSE, NOT PRIOR TO CONCEPTION, EXPOSURE TO SECOND TRIMESTER)
     Route: 064
     Dates: start: 20230116
  3. SYMTUZA [Suspect]
     Active Substance: COBICISTAT\DARUNAVIR\EMTRICITABINE\TENOFOVIR ALAFENAMIDE
     Indication: Product used for unknown indication
     Dosage: 1 DOSAGE FORM, QD (TAB/CAPS, 1 COURSE, PRIOR TO CONCEPTION, EXPOSURE TO FIRST TRIMESTER,  STOP DATE:
     Route: 064

REACTIONS (2)
  - Low birth weight baby [Unknown]
  - Foetal exposure during pregnancy [Unknown]

NARRATIVE: CASE EVENT DATE: 20230624
